FAERS Safety Report 19401130 (Version 3)
Quarter: 2021Q3

REPORT INFORMATION
  Report Type: Spontaneous
  Country: US (occurrence: US)
  Receive Date: 20210610
  Receipt Date: 20210727
  Transmission Date: 20211014
  Serious: No
  Sender: FDA-Public Use
  Company Number: US-PFIZER INC-2021322174

PATIENT
  Age: 40 Year
  Sex: Female

DRUGS (2)
  1. MEDROXYPROGESTERONE ACETATE. [Suspect]
     Active Substance: MEDROXYPROGESTERONE ACETATE
     Indication: SEIZURE PROPHYLAXIS
     Dosage: EVERY 10 WEEKS
  2. MEDROXYPROGESTERONE ACETATE. [Suspect]
     Active Substance: MEDROXYPROGESTERONE ACETATE
     Indication: MENSTRUAL CYCLE MANAGEMENT

REACTIONS (3)
  - Off label use [Unknown]
  - Product dose omission issue [Unknown]
  - Device leakage [Unknown]

NARRATIVE: CASE EVENT DATE: 202103
